FAERS Safety Report 6234223-6 (Version None)
Quarter: 2009Q2

REPORT INFORMATION
  Report Type: 
  Country: None (occurrence: None)
  Receive Date: 20090618
  Receipt Date: 20090615
  Transmission Date: 20091009
  Serious: Yes (Hospitalization)
  Sender: FDA-Public Use
  Company Number: TW-ROXANE LABORATORIES, INC.-2009-RO-00587RO

PATIENT
  Age: 9 Year
  Sex: Male

DRUGS (4)
  1. OXCARBAZEPINE [Suspect]
     Indication: CONVULSION
     Dosage: 300MG
  2. OXCARBAZEPINE [Suspect]
     Dosage: 600MG
  3. STEROID [Concomitant]
     Indication: STEVENS-JOHNSON SYNDROME
     Route: 042
  4. ANTIHISTAMINE [Concomitant]
     Indication: STEVENS-JOHNSON SYNDROME

REACTIONS (3)
  - C-REACTIVE PROTEIN INCREASED [None]
  - LEUKOCYTOSIS [None]
  - STEVENS-JOHNSON SYNDROME [None]
